FAERS Safety Report 9713606 (Version 1)
Quarter: 2013Q4

REPORT INFORMATION
  Report Type: Spontaneous
  Country: US (occurrence: US)
  Receive Date: 20131126
  Receipt Date: 20131126
  Transmission Date: 20140711
  Serious: Yes (Other)
  Sender: FDA-Public Use
  Company Number: US-BAXTER-2013BAX045958

PATIENT
  Age: 37 Year
  Sex: Male

DRUGS (10)
  1. OSMITROL INJECTION (MANNITOL INJECTION, USP) [Suspect]
     Indication: CRANIOTOMY
     Dosage: 0.7 G/KG
     Route: 042
  2. OSMITROL INJECTION (MANNITOL INJECTION, USP) [Suspect]
     Indication: CEREBRAL CYST EXCISION
  3. SEVOFLURANE, USP [Suspect]
     Indication: MAINTENANCE OF ANAESTHESIA
     Route: 065
  4. LIDOCAINE HYDROCHLORIDE AND 5% DEXTROSE INJECTION, USP [Suspect]
     Indication: INDUCTION OF ANAESTHESIA
     Route: 065
  5. MIDAZOLAM [Suspect]
     Indication: PREMEDICATION
     Route: 065
  6. PROPOFOL [Suspect]
     Indication: INDUCTION OF ANAESTHESIA
     Route: 065
  7. ROCURONIUM [Suspect]
     Indication: INDUCTION OF ANAESTHESIA
     Route: 065
  8. REMIFENTANIL [Suspect]
     Indication: MAINTENANCE OF ANAESTHESIA
     Route: 042
  9. DEXAMETHASONE [Suspect]
     Indication: PRODUCT USED FOR UNKNOWN INDICATION
     Route: 042
  10. FOSPHENYTOIN [Suspect]
     Indication: PRODUCT USED FOR UNKNOWN INDICATION
     Route: 042

REACTIONS (3)
  - Hyperkalaemia [Recovered/Resolved]
  - Hyponatraemia [Recovered/Resolved]
  - Electrocardiogram T wave peaked [Recovered/Resolved]
